FAERS Safety Report 5607104-6 (Version None)
Quarter: 2008Q1

REPORT INFORMATION
  Report Type: 
  Country: None (occurrence: None)
  Receive Date: 20080129
  Receipt Date: 20080122
  Transmission Date: 20080703
  Serious: Yes (Death, Hospitalization)
  Sender: FDA-Public Use
  Company Number: FR-PFIZER INC-2008004455

PATIENT
  Age: 66 Year
  Sex: Male

DRUGS (13)
  1. TAHOR [Suspect]
     Route: 048
  2. FLOLAN [Suspect]
     Dosage: TEXT:16 NG/KG/MIN
     Route: 042
  3. AMARYL [Suspect]
     Route: 048
  4. PREVISCAN [Suspect]
     Route: 048
  5. LASILIX [Suspect]
     Route: 048
  6. XATRAL [Suspect]
     Route: 048
     Dates: start: 20070201, end: 20070413
  7. AVODART [Concomitant]
     Route: 048
     Dates: start: 20070301, end: 20070413
  8. FONZYLANE [Concomitant]
     Route: 048
  9. XANAX [Concomitant]
     Route: 048
  10. SYMBICORT [Concomitant]
     Dosage: TEXT:400/12
     Route: 055
  11. CITALOPRAM HYDROBROMIDE [Concomitant]
  12. AUGMENTIN '250' [Concomitant]
     Dates: start: 20070410, end: 20070413
  13. TOBREX [Concomitant]

REACTIONS (1)
  - THROMBOCYTOPENIA [None]
